FAERS Safety Report 21463430 (Version 1)
Quarter: 2022Q4

REPORT INFORMATION
  Report Type: Spontaneous
  Country: US (occurrence: US)
  Receive Date: 20221017
  Receipt Date: 20221017
  Transmission Date: 20230113
  Serious: No
  Sender: FDA-Public Use
  Company Number: US-SA-SAC20221014000407

PATIENT
  Age: 48 Year
  Sex: Female

DRUGS (1)
  1. DUPIXENT [Suspect]
     Active Substance: DUPILUMAB
     Dosage: 300 MG/2ML: RX 2: INJECT 300 MG( 1 PEN) ;EVERY FOURTEEN DAYS.
     Route: 058
     Dates: start: 20220622

REACTIONS (2)
  - Stress [Unknown]
  - Condition aggravated [Unknown]
